FAERS Safety Report 8955157 (Version 2)
Quarter: 2013Q1

REPORT INFORMATION
  Report Type: Spontaneous
  Country: US (occurrence: US)
  Receive Date: 20121210
  Receipt Date: 20130301
  Transmission Date: 20140127
  Serious: Yes (Hospitalization)
  Sender: FDA-Public Use
  Company Number: US-BIOGENIDEC-2012BI056360

PATIENT
  Age: 44 Year
  Sex: Male

DRUGS (2)
  1. AVONEX [Suspect]
     Indication: MULTIPLE SCLEROSIS
     Route: 030
     Dates: start: 20050316
  2. AVONEX [Suspect]
     Indication: MULTIPLE SCLEROSIS
     Route: 030
     Dates: start: 20110125

REACTIONS (8)
  - Bladder operation [Unknown]
  - Colostomy [Unknown]
  - Stent placement [Unknown]
  - Urinary tract infection [Recovered/Resolved with Sequelae]
  - General physical health deterioration [Unknown]
  - Renal failure [Unknown]
  - Respiratory failure [Recovered/Resolved]
  - Confusional state [Recovered/Resolved]
